FAERS Safety Report 11518610 (Version 1)
Quarter: 2015Q3

REPORT INFORMATION
  Report Type: Spontaneous
  Country: US (occurrence: US)
  Receive Date: 20150917
  Receipt Date: 20150917
  Transmission Date: 20151125
  Serious: Yes (Hospitalization)
  Sender: FDA-Public Use
  Company Number: US-BAUSCH-BL-2015-004096

PATIENT
  Age: 58 Year
  Sex: Male
  Weight: 74.91 kg

DRUGS (7)
  1. MORPHINE HYDROCHLORIDE [Suspect]
     Active Substance: MORPHINE HYDROCHLORIDE
     Indication: PAIN MANAGEMENT
     Route: 065
  2. TRIAMCINOLONE ACETONIDE. [Suspect]
     Active Substance: TRIAMCINOLONE ACETONIDE
     Indication: PAIN MANAGEMENT
     Route: 065
  3. COAL TAR SHAMPOO [Concomitant]
     Indication: PRODUCT USED FOR UNKNOWN INDICATION
  4. EFUDEX [Suspect]
     Active Substance: FLUOROURACIL
     Indication: NEOPLASM PROPHYLAXIS
     Route: 061
     Dates: start: 20150201, end: 20150203
  5. KETOCONAZOLE SHAMPOO [Concomitant]
     Active Substance: KETOCONAZOLE
     Indication: PRODUCT USED FOR UNKNOWN INDICATION
  6. ZINC OXIDE. [Concomitant]
     Active Substance: ZINC OXIDE
     Indication: PRODUCT USED FOR UNKNOWN INDICATION
  7. CALCIUM, VITAMIN D [Concomitant]
     Indication: PRODUCT USED FOR UNKNOWN INDICATION

REACTIONS (2)
  - Drug ineffective [Recovering/Resolving]
  - Rash [Recovering/Resolving]

NARRATIVE: CASE EVENT DATE: 201502
